FAERS Safety Report 7350329-2 (Version None)
Quarter: 2011Q1

REPORT INFORMATION
  Report Type: 
  Country: None (occurrence: None)
  Receive Date: 20110314
  Receipt Date: 20110308
  Transmission Date: 20110831
  Serious: No
  Sender: FDA-Public Use
  Company Number: US-ROXANE LABORATORIES, INC.-2011-RO-00197RO

PATIENT
  Sex: Female
  Weight: 97 kg

DRUGS (4)
  1. CELEBREX [Concomitant]
     Indication: OSTEOARTHRITIS
     Dates: start: 20060101
  2. LOSARTAN POTASSIUM [Suspect]
     Indication: HYPERTENSION
     Dosage: 50 MG
     Route: 048
     Dates: start: 20110211, end: 20110213
  3. LIPITOR [Concomitant]
     Indication: BLOOD CHOLESTEROL INCREASED
     Dosage: 10 MG
  4. ARIMIDEX [Concomitant]
     Indication: BREAST CANCER
     Dosage: 1 MG
     Dates: start: 20090901

REACTIONS (1)
  - HEADACHE [None]
